FAERS Safety Report 11078343 (Version 1)
Quarter: 2015Q2

REPORT INFORMATION
  Report Type: Spontaneous
  Country: US (occurrence: None)
  Receive Date: 20150429
  Receipt Date: 20150429
  Transmission Date: 20150821
  Serious: No
  Sender: FDA-Public Use
  Company Number: None

PATIENT
  Age: 56 Year
  Sex: Female
  Weight: 81.65 kg

DRUGS (6)
  1. FENTANYL. [Concomitant]
     Active Substance: FENTANYL
  2. SYNTHROID [Concomitant]
     Active Substance: LEVOTHYROXINE SODIUM
  3. LOZENGES [Concomitant]
     Active Substance: CAPSICUM OLEORESIN
  4. PROVIGIL [Concomitant]
     Active Substance: MODAFINIL
  5. ANTIBIOTICS [Concomitant]
     Active Substance: UNSPECIFIED INGREDIENT
  6. MOVANTIK [Suspect]
     Active Substance: NALOXEGOL OXALATE
     Indication: CONSTIPATION
     Route: 048
     Dates: start: 20150426

REACTIONS (7)
  - Abdominal pain upper [None]
  - Diarrhoea [None]
  - Abnormal sleep-related event [None]
  - Anxiety [None]
  - Faecal incontinence [None]
  - Nausea [None]
  - Chills [None]

NARRATIVE: CASE EVENT DATE: 20150405
